FAERS Safety Report 13781733 (Version 2)
Quarter: 2018Q4

REPORT INFORMATION
  Report Type: Report from Study
  Country: US (occurrence: US)
  Receive Date: 20170724
  Receipt Date: 20181202
  Transmission Date: 20190204
  Serious: Yes (Death, Life-Threatening, Hospitalization, Other)
  Sender: FDA-Public Use
  Company Number: US-B.I. PHARMACEUTICALS,INC./RIDGEFIELD-2017-BI-040544

PATIENT
  Age: 86 Year
  Sex: Male

DRUGS (1)
  1. PRADAXA [Suspect]
     Active Substance: DABIGATRAN ETEXILATE MESYLATE
     Indication: ATRIAL FIBRILLATION
     Route: 065

REACTIONS (11)
  - Respiratory failure [Unknown]
  - Septic shock [Unknown]
  - Acute kidney injury [Unknown]
  - Post procedural haemorrhage [Unknown]
  - Anticoagulation drug level above therapeutic [Not Recovered/Not Resolved]
  - Post procedural haemorrhage [Fatal]
  - Coagulopathy [Unknown]
  - Atrial fibrillation [Recovered/Resolved]
  - Atrial fibrillation [Unknown]
  - Pneumonia [Unknown]
  - Anticoagulation drug level abnormal [Not Recovered/Not Resolved]
